FAERS Safety Report 16963885 (Version 1)
Quarter: 2019Q4

REPORT INFORMATION
  Report Type: Spontaneous
  Country: FR (occurrence: FR)
  Receive Date: 20191026
  Receipt Date: 20191026
  Transmission Date: 20200122
  Serious: Yes (Hospitalization)
  Sender: FDA-Public Use
  Company Number: FR-ACCORD-158995

PATIENT
  Age: 57 Year
  Sex: Male
  Weight: 75 kg

DRUGS (14)
  1. INNOHEP [Concomitant]
     Active Substance: TINZAPARIN SODIUM
     Indication: PULMONARY EMBOLISM
     Route: 058
  2. EMEND [Interacting]
     Active Substance: APREPITANT
     Indication: PROPHYLAXIS OF NAUSEA AND VOMITING
     Dosage: 125 MG AT D1 AND 80MG AT D2 AND D5
     Route: 048
     Dates: start: 20190826, end: 20190830
  3. LYRICA [Concomitant]
     Active Substance: PREGABALIN
     Indication: NEURALGIA
     Route: 048
  4. KARDEGIC [Concomitant]
     Active Substance: ASPIRIN DL-LYSINE
     Indication: VASCULAR DISORDER PROPHYLAXIS
     Route: 048
  5. TAHOR [Concomitant]
     Active Substance: ATORVASTATIN CALCIUM
     Indication: DYSLIPIDAEMIA
     Route: 048
  6. XANAX [Concomitant]
     Active Substance: ALPRAZOLAM
     Indication: ANXIETY
     Route: 048
  7. CISPLATIN. [Suspect]
     Active Substance: CISPLATIN
     Indication: TESTICULAR NEOPLASM
     Route: 042
     Dates: start: 20190826, end: 20190830
  8. DOLIPRANE [Concomitant]
     Active Substance: ACETAMINOPHEN
     Indication: PAIN
     Route: 048
  9. ETOPOSIDE. [Interacting]
     Active Substance: ETOPOSIDE
     Indication: TESTICULAR NEOPLASM
     Route: 042
     Dates: start: 20190826, end: 20190830
  10. OXYNORMORO [Concomitant]
     Active Substance: OXYCODONE HYDROCHLORIDE
     Indication: PAIN
     Dosage: 5 MG MORNING IN SYSTEMATIC AND IF NOT ON DEMAND
     Route: 048
  11. LANSOPRAZOLE. [Concomitant]
     Active Substance: LANSOPRAZOLE
     Indication: GASTROINTESTINAL DISORDER PROPHYLAXIS
     Route: 048
  12. ISOPTINE [Concomitant]
     Active Substance: VERAPAMIL HYDROCHLORIDE
     Indication: SUPRAVENTRICULAR TACHYCARDIA
     Route: 048
     Dates: start: 20190623
  13. ISOPTINE [Concomitant]
     Active Substance: VERAPAMIL HYDROCHLORIDE
     Indication: SUPRAVENTRICULAR TACHYCARDIA
     Dosage: 40 MG 1 CPR MORNING NOON AND EVENING?NEXT CONSUMED ON 29 JUN 2019
     Route: 048
     Dates: start: 20190623
  14. IFOSFAMIDE. [Interacting]
     Active Substance: IFOSFAMIDE
     Indication: TESTICULAR NEOPLASM
     Route: 042
     Dates: start: 20190826, end: 20190830

REACTIONS (2)
  - Drug interaction [Unknown]
  - Encephalopathy [Recovered/Resolved]

NARRATIVE: CASE EVENT DATE: 20190830
